FAERS Safety Report 4277425-0 (Version None)
Quarter: 2004Q1

REPORT INFORMATION
  Report Type: 
  Country: None (occurrence: None)
  Receive Date: 20040122
  Receipt Date: 20040112
  Transmission Date: 20041129
  Serious: Yes (Hospitalization)
  Sender: FDA-Public Use
  Company Number: PL-BRISTOL-MYERS SQUIBB COMPANY-12475042

PATIENT
  Age: 6 Year
  Sex: Male

DRUGS (2)
  1. PARAPLATIN [Suspect]
     Indication: NEOPLASM
     Route: 042
     Dates: start: 20030704, end: 20031230
  2. IRINOTECAN [Suspect]
     Indication: NEOPLASM
     Route: 042
     Dates: start: 20030704, end: 20040108

REACTIONS (3)
  - DEHYDRATION [None]
  - DIARRHOEA [None]
  - VOMITING [None]
